FAERS Safety Report 5721944-4 (Version None)
Quarter: 2008Q2

REPORT INFORMATION
  Report Type: 
  Country: None (occurrence: None)
  Receive Date: 20080429
  Receipt Date: 20080416
  Transmission Date: 20081010
  Serious: Yes (Hospitalization)
  Sender: FDA-Public Use
  Company Number: US-ELI_LILLY_AND_COMPANY-US200804004596

PATIENT
  Sex: Female
  Weight: 121.54 kg

DRUGS (5)
  1. BYETTA [Suspect]
     Indication: TYPE 2 DIABETES MELLITUS
     Dosage: 5 UG, 2/D
     Route: 058
     Dates: start: 20060101, end: 20060101
  2. BYETTA [Suspect]
     Dosage: 10 UG, 2/D
     Route: 058
     Dates: start: 20060101, end: 20070101
  3. BYETTA [Suspect]
     Dosage: 5 UG, 2/D
     Route: 058
     Dates: start: 20070601, end: 20070701
  4. BYETTA [Suspect]
     Dosage: 10 UG, 2/D
     Route: 058
     Dates: start: 20070701
  5. METFORMIN HCL [Concomitant]
     Indication: TYPE 2 DIABETES MELLITUS
     Dosage: UNK, DAILY (1/D)
     Route: 048
     Dates: end: 20080301

REACTIONS (15)
  - ABDOMINAL PAIN UPPER [None]
  - ALOPECIA [None]
  - BLOOD PRESSURE INCREASED [None]
  - DRY SKIN [None]
  - DYSGEUSIA [None]
  - FEELING COLD [None]
  - FLATULENCE [None]
  - GASTROOESOPHAGEAL REFLUX DISEASE [None]
  - HYPERSOMNIA [None]
  - INJECTION SITE PAPULE [None]
  - NAUSEA [None]
  - PRURITUS [None]
  - STOMACH DISCOMFORT [None]
  - VERTIGO [None]
  - WEIGHT DECREASED [None]
